FAERS Safety Report 21663362 (Version 2)
Quarter: 2023Q1

REPORT INFORMATION
  Report Type: Spontaneous
  Country: SI (occurrence: SI)
  Receive Date: 20221130
  Receipt Date: 20230109
  Transmission Date: 20230418
  Serious: Yes (Other)
  Sender: FDA-Public Use
  Company Number: SI-002147023-NVSC2022SI214724

PATIENT
  Sex: Male

DRUGS (2)
  1. IMATINIB [Suspect]
     Active Substance: IMATINIB
     Indication: B-cell lymphoma
     Dosage: 400 MG
     Route: 065
     Dates: start: 201811
  2. IMATINIB [Suspect]
     Active Substance: IMATINIB
     Indication: Myeloproliferative neoplasm

REACTIONS (6)
  - Phaeochromocytoma [Unknown]
  - Paraesthesia [Unknown]
  - Vertigo [Unknown]
  - Nausea [Unknown]
  - Malaise [Unknown]
  - Dizziness [Unknown]

NARRATIVE: CASE EVENT DATE: 20211001
